FAERS Safety Report 4550064-X (Version None)
Quarter: 2005Q1

REPORT INFORMATION
  Report Type: 
  Country: None (occurrence: None)
  Receive Date: 20050110
  Receipt Date: 20041228
  Transmission Date: 20050727
  Serious: Yes (Other)
  Sender: FDA-Public Use
  Company Number: 2004120700

PATIENT
  Age: 65 Year
  Sex: Female

DRUGS (4)
  1. ZITHROMAX [Suspect]
     Indication: INFECTION
     Dosage: (250 MG, 1 IN 1 D, ORAL)
     Route: 048
     Dates: start: 20040101
  2. PREDNISONE [Suspect]
     Indication: DIVERTICULITIS
     Dosage: ORAL
     Route: 048
     Dates: start: 20040101
  3. MESALAMINE [Suspect]
     Indication: DIVERTICULITIS
     Dosage: ORAL
     Route: 048
     Dates: start: 20040101
  4. RABEPRAZOLE SODIUM [Concomitant]

REACTIONS (12)
  - ARTHRITIS [None]
  - CALCIUM DEFICIENCY [None]
  - COLITIS [None]
  - CROHN'S DISEASE [None]
  - DIVERTICULITIS [None]
  - DYSSTASIA [None]
  - IMMUNE SYSTEM DISORDER [None]
  - INFECTION [None]
  - JOINT SWELLING [None]
  - PAIN IN EXTREMITY [None]
  - PHARYNGOLARYNGEAL PAIN [None]
  - WEIGHT DECREASED [None]
